FAERS Safety Report 5874970-9 (Version None)
Quarter: 2008Q3

REPORT INFORMATION
  Report Type: 
  Country: None (occurrence: None)
  Receive Date: 20080908
  Receipt Date: 20080908
  Transmission Date: 20090109
  Serious: No
  Sender: FDA-Public Use
  Company Number: None

PATIENT
  Age: 52 Year
  Sex: Female
  Weight: 54.4316 kg

DRUGS (1)
  1. FENTANYL [Suspect]
     Indication: PAIN
     Dosage: 1PATCH 48-72HRS
     Dates: start: 20080609, end: 20080611

REACTIONS (4)
  - BODY TEMPERATURE DECREASED [None]
  - GAIT DISTURBANCE [None]
  - PYREXIA [None]
  - SOMNOLENCE [None]
